FAERS Safety Report 6686449-5 (Version None)
Quarter: 2010Q2

REPORT INFORMATION
  Report Type: 
  Country: None (occurrence: None)
  Receive Date: 20100419
  Receipt Date: 20100409
  Transmission Date: 20101027
  Serious: Yes (Other)
  Sender: FDA-Public Use
  Company Number: B0648023A

PATIENT
  Sex: Female

DRUGS (2)
  1. ZANTAC [Suspect]
     Indication: GASTRITIS
     Dosage: 150MG TWICE PER DAY
  2. BROMAZEPAM [Concomitant]

REACTIONS (3)
  - EYELID OEDEMA [None]
  - HEART VALVE INCOMPETENCE [None]
  - PALPITATIONS [None]
